FAERS Safety Report 8064593-8 (Version None)
Quarter: 2012Q1

REPORT INFORMATION
  Report Type: 
  Country: None (occurrence: None)
  Receive Date: 20120123
  Receipt Date: 20120111
  Transmission Date: 20120608
  Serious: Yes (Death, Life-Threatening, Hospitalization)
  Sender: FDA-Public Use
  Company Number: FR-MERCK-1201FRA00031

PATIENT
  Age: 45 Year
  Sex: Female
  Weight: 46 kg

DRUGS (7)
  1. TIANEPTINE SODIUM [Concomitant]
     Indication: DEPRESSION
     Route: 048
     Dates: end: 20111222
  2. ISENTRESS [Suspect]
     Indication: HIV INFECTION
     Route: 048
  3. EMTRICITABINE AND TENOFOVIR DISOPROXIL FUMARATE [Concomitant]
     Indication: HIV INFECTION
     Route: 048
  4. DOXYCYCLINE [Concomitant]
     Indication: ROSACEA
     Route: 048
     Dates: start: 20110901
  5. MIRTAZAPINE [Concomitant]
     Indication: DEPRESSION
     Route: 048
     Dates: start: 20111223
  6. CEFOTAXIME SODIUM [Concomitant]
     Route: 041
  7. ETRAVIRINE [Concomitant]
     Indication: HIV INFECTION
     Route: 048

REACTIONS (7)
  - SEPTIC SHOCK [None]
  - HAEMOLYTIC ANAEMIA [None]
  - FIBRINOLYSIS [None]
  - HEPATIC ENCEPHALOPATHY [None]
  - HYDROTHORAX [None]
  - HEPATIC CIRRHOSIS [None]
  - LUNG INFECTION [None]
